FAERS Safety Report 8732599 (Version 4)
Quarter: 2013Q2

REPORT INFORMATION
  Report Type: Spontaneous
  Country: IT (occurrence: IT)
  Receive Date: 20120820
  Receipt Date: 20130618
  Transmission Date: 20140414
  Serious: Yes (Hospitalization, Other)
  Sender: FDA-Public Use
  Company Number: IT-ROCHE-1101657

PATIENT
  Age: 55 Year
  Sex: Female

DRUGS (2)
  1. CAPECITABINE [Suspect]
     Indication: COLORECTAL CANCER METASTATIC
     Dosage: X 14 DAYS
     Route: 048
  2. OXALIPLATIN [Interacting]
     Indication: COLORECTAL CANCER METASTATIC
     Route: 042

REACTIONS (7)
  - Polyneuropathy [Recovering/Resolving]
  - Myopathy toxic [Recovering/Resolving]
  - Cardiotoxicity [Recovering/Resolving]
  - Drug interaction [Unknown]
  - Asthenia [Unknown]
  - Fatigue [Unknown]
  - Decreased appetite [Unknown]
